FAERS Safety Report 4388147-X (Version None)
Quarter: 2004Q2

REPORT INFORMATION
  Report Type: 
  Country: None (occurrence: None)
  Receive Date: 20040625
  Receipt Date: 20040615
  Transmission Date: 20050107
  Serious: Yes (Other)
  Sender: FDA-Public Use
  Company Number: 200412951BCC

PATIENT
  Age: 61 Year
  Sex: Male
  Weight: 108.8633 kg

DRUGS (1)
  1. E.S. BAYER BACK + BODY PAIN [Suspect]
     Indication: KNEE OPERATION
     Dosage: 500/32.5 MG, QD, ORAL
     Route: 048
     Dates: start: 20040614

REACTIONS (4)
  - BLOOD PRESSURE DIASTOLIC DECREASED [None]
  - HEART RATE INCREASED [None]
  - HYPERSENSITIVITY [None]
  - PALPITATIONS [None]
